FAERS Safety Report 18669732 (Version 1)
Quarter: 2020Q4

REPORT INFORMATION
  Report Type: Spontaneous
  Country: CN (occurrence: CN)
  Receive Date: 20201228
  Receipt Date: 20201228
  Transmission Date: 20210114
  Serious: Yes (Other)
  Sender: FDA-Public Use
  Company Number: CN-PFIZER INC-2020511036

PATIENT
  Age: 71 Year
  Sex: Female

DRUGS (4)
  1. SHU XUE NING [Concomitant]
     Active Substance: GINKGO
     Indication: CEREBRAL INFARCTION
     Dosage: 20 ML, 1X/DAY
     Route: 041
     Dates: start: 20201207, end: 20201213
  2. CEFOPERAZONE SODIUM [Suspect]
     Active Substance: CEFOPERAZONE SODIUM
     Indication: URINARY TRACT INFECTION
     Dosage: 2 G, 2X/DAY
     Route: 041
     Dates: start: 20201208, end: 20201210
  3. SODIUM CHLORIDE. [Suspect]
     Active Substance: SODIUM CHLORIDE
     Indication: VEHICLE SOLUTION USE
     Dosage: 100 ML, 2X/DAY
     Route: 041
     Dates: start: 20201208, end: 20201210
  4. BETAHISTINE HYDROCHLORIDE [Concomitant]
     Active Substance: BETAHISTINE HYDROCHLORIDE
     Indication: CEREBRAL INFARCTION
     Dosage: 20 MG, 1X/DAY
     Route: 041
     Dates: start: 20201207, end: 20201213

REACTIONS (1)
  - Rash erythematous [Recovering/Resolving]

NARRATIVE: CASE EVENT DATE: 20201210
